FAERS Safety Report 7113514 (Version 2)
Quarter: 2013Q1

REPORT INFORMATION
  Report Type: Spontaneous
  Country: NO (occurrence: None)
  Receive Date: 20090902
  Receipt Date: 20130108
  Transmission Date: 20140127
  Serious: Yes (Other)
  Sender: FDA-Public Use
  Company Number: 2009AP000569

PATIENT
  Age: 26 Year
  Sex: Female

DRUGS (4)
  1. PHENYTOIN [Suspect]
  2. LAMOTRIGINE (LAMOTRIGINE) [Suspect]
  3. CARBAMAZEPINE [Concomitant]
  4. OXCARBAZEPINE [Concomitant]

REACTIONS (2)
  - DRUG HYPERSENSITIVITY [None]
  - IDIOSYNCRATIC DRUG REACTION [None]
